FAERS Safety Report 5326917-1 (Version None)
Quarter: 2007Q2

REPORT INFORMATION
  Report Type: 
  Country: None (occurrence: None)
  Receive Date: 20070510
  Receipt Date: 20070419
  Transmission Date: 20071010
  Serious: Yes (Hospitalization)
  Sender: FDA-Public Use
  Company Number: JP200703006181

PATIENT
  Age: 14 Year
  Sex: Female
  Weight: 44.8 kg

DRUGS (8)
  1. ATOMOXETINE HYDROCHLORIDE (ATOMOXETINE HYDROCHLORIDE) CAPSULE [Suspect]
     Indication: ATTENTION DEFICIT/HYPERACTIVITY DISORDER
     Dosage: SEE IMAGE
     Route: 048
     Dates: start: 20050716, end: 20050729
  2. ATOMOXETINE HYDROCHLORIDE (ATOMOXETINE HYDROCHLORIDE) CAPSULE [Suspect]
     Indication: ATTENTION DEFICIT/HYPERACTIVITY DISORDER
     Dosage: SEE IMAGE
     Route: 048
     Dates: start: 20050729, end: 20050803
  3. ATOMOXETINE HYDROCHLORIDE (ATOMOXETINE HYDROCHLORIDE) CAPSULE [Suspect]
     Indication: ATTENTION DEFICIT/HYPERACTIVITY DISORDER
     Dosage: SEE IMAGE
     Route: 048
     Dates: start: 20050803, end: 20050812
  4. ATOMOXETINE HYDROCHLORIDE (ATOMOXETINE HYDROCHLORIDE) CAPSULE [Suspect]
     Indication: ATTENTION DEFICIT/HYPERACTIVITY DISORDER
     Dosage: SEE IMAGE
     Route: 048
     Dates: start: 20050812, end: 20050826
  5. ATOMOXETINE HYDROCHLORIDE (ATOMOXETINE HYDROCHLORIDE) CAPSULE [Suspect]
     Indication: ATTENTION DEFICIT/HYPERACTIVITY DISORDER
     Dosage: SEE IMAGE
     Route: 048
     Dates: start: 20050826, end: 20060310
  6. ATOMOXETINE HYDROCHLORIDE (ATOMOXETINE HYDROCHLORIDE) CAPSULE [Suspect]
     Indication: ATTENTION DEFICIT/HYPERACTIVITY DISORDER
     Dosage: SEE IMAGE
     Route: 048
     Dates: start: 20060310, end: 20060524
  7. ATOMOXETINE HYDROCHLORIDE (ATOMOXETINE HYDROCHLORIDE) CAPSULE [Suspect]
     Indication: ATTENTION DEFICIT/HYPERACTIVITY DISORDER
     Dosage: SEE IMAGE
     Route: 048
     Dates: start: 20060524, end: 20070323
  8. SINGULAIR (MONTELUKAST) TABLET [Concomitant]

REACTIONS (5)
  - DERMAL CYST [None]
  - HEADACHE [None]
  - MALAISE [None]
  - SOMNOLENCE [None]
  - THYROID ADENOMA [None]
